FAERS Safety Report 7103211-X (Version None)
Quarter: 2010Q4

REPORT INFORMATION
  Report Type: 
  Country: None (occurrence: None)
  Receive Date: 20101115
  Receipt Date: 20090304
  Transmission Date: 20110411
  Serious: No
  Sender: FDA-Public Use
  Company Number: US-KINGPHARMUSA00001-K200900242

PATIENT
  Age: 60 Year
  Sex: Female

DRUGS (9)
  1. CYTOMEL [Suspect]
     Indication: THYROID DISORDER
     Dosage: 37.5 MCG, QD
     Route: 048
     Dates: start: 20070101
  2. CYTOMEL [Interacting]
     Dosage: TITRATED DOSES UP TO 100 MCG, QD
     Route: 048
     Dates: start: 20060101, end: 20070101
  3. VIVELLE [Interacting]
     Indication: MENOPAUSE
     Dosage: 1 PATCH, UNK
     Route: 061
     Dates: start: 20081201
  4. PROGESTERONE [Concomitant]
     Indication: MENOPAUSE
     Dosage: UNK
     Route: 061
  5. SYNTHROID [Concomitant]
     Indication: THYROID DISORDER
     Dosage: 25 MCG, QD
     Route: 048
  6. M.V.I. [Concomitant]
     Indication: SUPPLEMENTATION THERAPY
     Dosage: UNK
     Route: 048
  7. CALCIUM [Concomitant]
     Indication: SUPPLEMENTATION THERAPY
     Dosage: UNK
     Route: 048
  8. MAGNESIUM [Concomitant]
     Indication: SUPPLEMENTATION THERAPY
     Dosage: UNK
     Route: 048
  9. DIGESTIVES, INCL ENZYMES [Concomitant]
     Indication: SUPPLEMENTATION THERAPY
     Dosage: UNK
     Route: 048

REACTIONS (4)
  - CONSTIPATION [None]
  - FACE OEDEMA [None]
  - FATIGUE [None]
  - FLUID RETENTION [None]
